FAERS Safety Report 17398161 (Version 1)
Quarter: 2020Q1

REPORT INFORMATION
  Report Type: Spontaneous
  Country: JP (occurrence: JP)
  Receive Date: 20200210
  Receipt Date: 20200210
  Transmission Date: 20200409
  Serious: Yes (Hospitalization, Other)
  Sender: FDA-Public Use
  Company Number: JP-SA-2020SA028361

PATIENT
  Age: 60 Year

DRUGS (2)
  1. IRINOTECAN [Suspect]
     Active Substance: IRINOTECAN
     Indication: PRODUCT USED FOR UNKNOWN INDICATION
     Route: 065
  2. ZALTRAP [Suspect]
     Active Substance: ZIV-AFLIBERCEPT
     Indication: PRODUCT USED FOR UNKNOWN INDICATION
     Route: 041

REACTIONS (5)
  - Hepatic cirrhosis [Recovering/Resolving]
  - Varices oesophageal [Unknown]
  - Oesophageal varices haemorrhage [Recovering/Resolving]
  - Oedema peripheral [Recovering/Resolving]
  - Localised oedema [Recovering/Resolving]

NARRATIVE: CASE EVENT DATE: 20191225
